FAERS Safety Report 23501625 (Version 2)
Quarter: 2024Q1

REPORT INFORMATION
  Report Type: Spontaneous
  Country: IT (occurrence: IT)
  Receive Date: 20240208
  Receipt Date: 20240214
  Transmission Date: 20240410
  Serious: Yes (Death, Other)
  Sender: FDA-Public Use
  Company Number: None

PATIENT
  Age: 62 Year
  Sex: Female
  Weight: 50 kg

DRUGS (10)
  1. KEYTRUDA [Suspect]
     Active Substance: PEMBROLIZUMAB
     Indication: Lung adenocarcinoma
     Dosage: 200 MG, TIW
     Route: 042
     Dates: start: 20230407, end: 20230721
  2. PEMETREXED [Suspect]
     Active Substance: PEMETREXED
     Indication: Lung adenocarcinoma
     Dosage: 500 MG, TIW
     Route: 042
     Dates: start: 20230407, end: 20230721
  3. ASACOL [Concomitant]
     Active Substance: MESALAMINE
     Indication: Colitis ulcerative
     Dosage: 400 MG
     Route: 054
  4. CIPROFLOXACIN [Concomitant]
     Active Substance: CIPROFLOXACIN
     Indication: Product used for unknown indication
     Dosage: 500 MG, BID
     Route: 048
     Dates: start: 20230823, end: 20230829
  5. CISPLATIN [Concomitant]
     Active Substance: CISPLATIN
     Indication: Lung adenocarcinoma
     Dosage: UNK
     Route: 042
     Dates: start: 20230407, end: 20230630
  6. INFLIXIMAB [Concomitant]
     Active Substance: INFLIXIMAB
     Indication: Colitis ulcerative
     Dosage: 5 MG/KG
     Route: 065
     Dates: start: 20230829
  7. METHYLPREDNISOLONE [Concomitant]
     Active Substance: METHYLPREDNISOLONE
     Indication: Product used for unknown indication
     Dosage: 1.5 MG/KG
     Route: 065
     Dates: start: 20230824, end: 20230829
  8. MESALAMINE [Concomitant]
     Active Substance: MESALAMINE
     Indication: Product used for unknown indication
     Dosage: 4 G
     Route: 054
  9. PREDNISONE [Concomitant]
     Active Substance: PREDNISONE
     Indication: Product used for unknown indication
     Dosage: 10 MG
     Route: 048
  10. BECLOMETHASONE DIPROPIONATE [Concomitant]
     Active Substance: BECLOMETHASONE DIPROPIONATE
     Indication: Colitis ulcerative
     Dosage: 3 MG
     Route: 054

REACTIONS (4)
  - Diarrhoea [Fatal]
  - Abnormal loss of weight [Fatal]
  - Immune-mediated enterocolitis [Fatal]
  - Vomiting [Recovered/Resolved]

NARRATIVE: CASE EVENT DATE: 20230701
